FAERS Safety Report 14011049 (Version 1)
Quarter: 2017Q3

REPORT INFORMATION
  Report Type: Report from Study
  Country: JP (occurrence: JP)
  Receive Date: 20170926
  Receipt Date: 20170926
  Transmission Date: 20171128
  Serious: Yes (Hospitalization)
  Sender: FDA-Public Use
  Company Number: JP-VIFOR (INTERNATIONAL) INC.-VIT-2017-03643

PATIENT
  Age: 84 Year
  Sex: Female
  Weight: 37.8 kg

DRUGS (21)
  1. SILECE [Concomitant]
     Active Substance: FLUNITRAZEPAM
     Route: 048
  2. LANSOPRAZOLE. [Concomitant]
     Active Substance: LANSOPRAZOLE
     Route: 048
  3. DIART [Concomitant]
     Active Substance: AZOSEMIDE
  4. SPIRONOLACTONE. [Concomitant]
     Active Substance: SPIRONOLACTONE
     Route: 048
  5. VELPHORO [Suspect]
     Active Substance: FERRIC OXYHYDROXIDE
     Indication: HYPERPHOSPHATAEMIA
     Route: 048
     Dates: start: 20161221, end: 20170118
  6. L-CARTIN FF [Concomitant]
     Active Substance: LEVOCARNITINE
     Route: 048
  7. FAMOTIDINE. [Concomitant]
     Active Substance: FAMOTIDINE
     Route: 048
     Dates: start: 20161228
  8. BEPRICOR [Concomitant]
     Active Substance: BEPRIDIL
     Route: 048
  9. CLARITIN [Concomitant]
     Active Substance: LORATADINE
     Route: 048
  10. WARFARIN [Concomitant]
     Active Substance: WARFARIN
     Route: 048
  11. TRIAZOLAM. [Concomitant]
     Active Substance: TRIAZOLAM
     Route: 048
  12. LANDSEN [Concomitant]
     Active Substance: CLONAZEPAM
     Route: 048
  13. ISOCORONAL R [Concomitant]
     Active Substance: ISOSORBIDE DINITRATE
     Route: 048
  14. ALOSENN [Concomitant]
     Active Substance: SENNA LEAF
     Route: 048
  15. LENDORMIN [Concomitant]
     Active Substance: BROTIZOLAM
     Route: 048
  16. SLOW-K [Concomitant]
     Active Substance: POTASSIUM CHLORIDE
     Route: 048
     Dates: start: 20161227
  17. MIDPELIQ L250 [Concomitant]
     Indication: PERITONEAL DIALYSIS
     Dosage: 2 BAGS
     Route: 050
     Dates: start: 20161216
  18. SAMSCA [Concomitant]
     Active Substance: TOLVAPTAN
     Route: 048
  19. EK-68 SHAKUYAKUKANZOTO [Concomitant]
     Route: 048
  20. MIRCERA [Suspect]
     Active Substance: METHOXY POLYETHYLENE GLYCOL-EPOETIN BETA
     Indication: PRODUCT USED FOR UNKNOWN INDICATION
     Dates: start: 20161221, end: 20170118
  21. CALONAL [Concomitant]
     Active Substance: ACETAMINOPHEN
     Route: 048

REACTIONS (2)
  - Abdominal discomfort [Unknown]
  - Rib fracture [Recovering/Resolving]

NARRATIVE: CASE EVENT DATE: 20161222
